FAERS Safety Report 5130725-4 (Version None)
Quarter: 2006Q4

REPORT INFORMATION
  Report Type: 
  Country: None (occurrence: None)
  Receive Date: 20061019
  Receipt Date: 20061010
  Transmission Date: 20070319
  Serious: Yes (Other)
  Sender: FDA-Public Use
  Company Number: CZ-PURDUE-DEU_2006_0002529

PATIENT
  Age: 40 Year
  Sex: Female

DRUGS (1)
  1. DHC MUNDIPHARMA 60 MG [Suspect]
     Indication: PAIN
     Dosage: 60 MG, BID
     Route: 048
     Dates: start: 20060701

REACTIONS (3)
  - DISORIENTATION [None]
  - MOTOR DYSFUNCTION [None]
  - VERTIGO [None]
